FAERS Safety Report 7003351-X (Version None)
Quarter: 2010Q3

REPORT INFORMATION
  Report Type: 
  Country: None (occurrence: None)
  Receive Date: 20100920
  Receipt Date: 20100902
  Transmission Date: 20110219
  Serious: No
  Sender: FDA-Public Use
  Company Number: US-PFIZER INC-2010111813

PATIENT
  Sex: Male
  Weight: 70.3 kg

DRUGS (3)
  1. VIAGRA [Suspect]
     Indication: PROSTATECTOMY
     Dosage: 100 MG, AS NEEDED
     Route: 048
  2. CIALIS [Suspect]
     Dosage: UNK
  3. NEXIUM [Concomitant]
     Indication: GASTROOESOPHAGEAL REFLUX DISEASE
     Dosage: 20 MG, THREE TIMES A WEEK
     Route: 048

REACTIONS (2)
  - DIZZINESS [None]
  - DRUG INEFFECTIVE [None]
